FAERS Safety Report 23032098 (Version 7)
Quarter: 2023Q4

REPORT INFORMATION
  Report Type: Spontaneous
  Country: PL (occurrence: PL)
  Receive Date: 20231005
  Receipt Date: 20231226
  Transmission Date: 20240110
  Serious: Yes (Hospitalization, Other)
  Sender: FDA-Public Use
  Company Number: PL-Accord-381313

PATIENT
  Age: 59 Year
  Sex: Female
  Weight: 60.8 kg

DRUGS (16)
  1. CARBOPLATIN [Suspect]
     Active Substance: CARBOPLATIN
     Indication: Non-small cell lung cancer metastatic
     Dosage: 5 AUC, 1Q3W
     Route: 042
     Dates: start: 20230822
  2. PEMETREXED [Suspect]
     Active Substance: PEMETREXED
     Indication: Non-small cell lung cancer metastatic
     Dosage: 500 MILLIGRAM/SQ. METER, 1Q3W
     Route: 042
     Dates: start: 20230822
  3. PEMBROLIZUMAB [Suspect]
     Active Substance: PEMBROLIZUMAB
     Indication: Non-small cell lung cancer metastatic
     Dosage: 200 MILLIGRAM, 1Q3W
     Route: 042
     Dates: start: 20230822, end: 20230822
  4. LEVETIRACETAM [Concomitant]
     Active Substance: LEVETIRACETAM
     Dates: start: 20230626
  5. DEXAMETHASONE [Concomitant]
     Active Substance: DEXAMETHASONE
     Dates: start: 20230822, end: 20231102
  6. ONDANSETRON [Concomitant]
     Active Substance: ONDANSETRON
     Dates: start: 20230822, end: 20231102
  7. VITAMIN B12 [Concomitant]
     Active Substance: CYANOCOBALAMIN
     Dates: start: 20230822, end: 20231011
  8. FOLIK [Concomitant]
     Dates: start: 20230822
  9. ATOSSA [Concomitant]
     Dates: start: 20230822
  10. DEXAMETHASONE [Concomitant]
     Active Substance: DEXAMETHASONE
     Dates: start: 20230822, end: 20230823
  11. MYCOPHENOLIC ACID [Concomitant]
     Active Substance: MYCOPHENOLIC ACID
     Dates: start: 20230911, end: 20231024
  12. NITRENDIPINE [Concomitant]
     Active Substance: NITRENDIPINE
     Dates: start: 20230822, end: 20230822
  13. CAPTOPRIL [Concomitant]
     Active Substance: CAPTOPRIL
     Dates: start: 20230822, end: 20230822
  14. PANTOPRAZOLE SODIUM [Concomitant]
     Active Substance: PANTOPRAZOLE SODIUM
     Dates: start: 20230906, end: 20231108
  15. HEPAREGEN [Concomitant]
     Dates: start: 20230905
  16. PREDNISONE [Concomitant]
     Active Substance: PREDNISONE
     Dates: start: 20230906, end: 20230907

REACTIONS (1)
  - Hepatitis [Recovered/Resolved]

NARRATIVE: CASE EVENT DATE: 20230905
